FAERS Safety Report 20480063 (Version 1)
Quarter: 2022Q1

REPORT INFORMATION
  Report Type: Spontaneous
  Country: US (occurrence: None)
  Receive Date: 20220215
  Receipt Date: 20220215
  Transmission Date: 20220423
  Serious: Yes (unspecified)
  Sender: FDA-Public Use
  Company Number: None

PATIENT
  Age: 54 Year
  Sex: Female
  Weight: 70.1 kg

DRUGS (4)
  1. CISPLATIN [Suspect]
     Active Substance: CISPLATIN
     Indication: Cholangiocarcinoma
     Dosage: FREQUENCY : ONCE;?
     Route: 041
     Dates: start: 20220209, end: 20220209
  2. DIPHENHYDRAMINE [Concomitant]
     Dates: start: 20220209, end: 20220209
  3. HYDROCORTISONE [Concomitant]
     Dates: start: 20220209, end: 20220209
  4. FAMOTIDINE [Concomitant]
     Dates: start: 20220209, end: 20220209

REACTIONS (11)
  - Drug intolerance [None]
  - Throat irritation [None]
  - Pruritus [None]
  - Erythema [None]
  - Infusion related reaction [None]
  - Chest pain [None]
  - Chest discomfort [None]
  - Pruritus [None]
  - Anxiety [None]
  - Restless legs syndrome [None]
  - Feeling hot [None]

NARRATIVE: CASE EVENT DATE: 20220209
